FAERS Safety Report 8332340-8 (Version None)
Quarter: 2012Q2

REPORT INFORMATION
  Report Type: 
  Country: None (occurrence: None)
  Receive Date: 20120430
  Receipt Date: 20120412
  Transmission Date: 20120825
  Serious: Yes (Death, Hospitalization)
  Sender: FDA-Public Use
  Company Number: THQ2012A00943

PATIENT
  Age: 67 Year
  Sex: Male

DRUGS (7)
  1. LANSOPRAZOLE [Suspect]
     Dosage: 15 MG (15 MG, 1 IN 1 D) PER ORAL
     Route: 048
     Dates: start: 20100830, end: 20101101
  2. PROGRAF [Suspect]
     Indication: RHEUMATOID ARTHRITIS
     Dosage: 1 MG (UID/QD) PER ORAL
     Route: 048
     Dates: start: 20100323
  3. RHEUMATREX [Suspect]
     Indication: RHEUMATOID ARTHRITIS
     Dosage: 4 MG (2 MG,2 IN 1 D)  PER ORAL, 6 MG (UID/QD) PER ORAL, 8 MG (UID/QD)PER ORAL
     Route: 048
     Dates: start: 20100706, end: 20101101
  4. RHEUMATREX [Suspect]
     Indication: RHEUMATOID ARTHRITIS
     Dosage: 4 MG (2 MG,2 IN 1 D)  PER ORAL, 6 MG (UID/QD) PER ORAL, 8 MG (UID/QD)PER ORAL
     Route: 048
     Dates: start: 20100123, end: 20100223
  5. RHEUMATREX [Suspect]
     Indication: RHEUMATOID ARTHRITIS
     Dosage: 4 MG (2 MG,2 IN 1 D)  PER ORAL, 6 MG (UID/QD) PER ORAL, 8 MG (UID/QD)PER ORAL
     Route: 048
     Dates: start: 20100223, end: 20100706
  6. AZULFIDINE [Concomitant]
  7. CELECOXIB [Suspect]
     Indication: RHEUMATOID ARTHRITIS
     Dosage: 400 MG (200 MG,2 IN 1 D) PER ORAL
     Route: 048
     Dates: start: 20100123, end: 20101101

REACTIONS (3)
  - BLADDER CANCER [None]
  - PNEUMONIA ASPIRATION [None]
  - URINARY BLADDER POLYP [None]
